FAERS Safety Report 9831613 (Version 1)
Quarter: 2014Q1

REPORT INFORMATION
  Report Type: Spontaneous
  Country: US (occurrence: US)
  Receive Date: 20140121
  Receipt Date: 20140121
  Transmission Date: 20141002
  Serious: No
  Sender: FDA-Public Use
  Company Number: US-PFIZER INC-2014015961

PATIENT
  Age: 54 Year
  Sex: Female

DRUGS (5)
  1. EFFEXOR [Suspect]
     Dosage: UNK
  2. MORPHINE SULFATE [Suspect]
     Dosage: UNK
  3. FLUTICASONE [Suspect]
     Dosage: UNK
  4. LORTAB [Suspect]
     Dosage: UNK
  5. COCONUT OIL [Suspect]
     Dosage: UNK

REACTIONS (1)
  - Drug hypersensitivity [Unknown]
